FAERS Safety Report 5734109-7 (Version None)
Quarter: 2008Q2

REPORT INFORMATION
  Report Type: 
  Country: None (occurrence: None)
  Receive Date: 20080509
  Receipt Date: 20080429
  Transmission Date: 20081010
  Serious: Yes (Other)
  Sender: FDA-Public Use
  Company Number: US-PFIZER INC-2008039188

PATIENT
  Sex: Female
  Weight: 72.272 kg

DRUGS (2)
  1. CHANTIX [Suspect]
     Indication: SMOKING CESSATION THERAPY
  2. DEPO-PROVERA [Concomitant]

REACTIONS (2)
  - DRUG INEFFECTIVE [None]
  - HOMICIDAL IDEATION [None]
